FAERS Safety Report 9859588 (Version 2)
Quarter: 2014Q1

REPORT INFORMATION
  Report Type: Spontaneous
  Country: US (occurrence: US)
  Receive Date: 20140131
  Receipt Date: 20140317
  Transmission Date: 20141002
  Serious: No
  Sender: FDA-Public Use
  Company Number: US-TEVA-459626USA

PATIENT
  Age: 18 Year
  Sex: Male
  Weight: 71.28 kg

DRUGS (10)
  1. CLARAVIS [Suspect]
     Indication: ACNE
     Dosage: 40 MILLIGRAM DAILY;
     Dates: start: 20131025, end: 20131213
  2. CLARAVIS [Suspect]
     Dosage: 20 MILLIGRAM DAILY;
  3. CLARAVIS [Suspect]
     Dosage: 10 MILLIGRAM DAILY;
  4. CLARAVIS [Suspect]
     Dosage: 60 MILLIGRAM DAILY;
  5. CLARAVIS [Suspect]
     Dosage: 30 MILLIGRAM DAILY;
  6. CLARAVIS [Suspect]
     Dosage: 20 MILLIGRAM DAILY;
  7. MUPIROCIN [Concomitant]
     Dosage: LIPS
  8. CLOTRASON [Concomitant]
  9. SOLODYN [Concomitant]
     Dosage: 80 MILLIGRAM DAILY;
  10. AVAR [Concomitant]
     Dosage: CLEANSER AND CREAM

REACTIONS (2)
  - Epistaxis [Recovering/Resolving]
  - Cheilitis [Recovering/Resolving]
